FAERS Safety Report 18318572 (Version 1)
Quarter: 2020Q3

REPORT INFORMATION
  Report Type: Spontaneous
  Country: IE (occurrence: IE)
  Receive Date: 20200928
  Receipt Date: 20200928
  Transmission Date: 20201103
  Serious: Yes (Other)
  Sender: FDA-Public Use
  Company Number: IE-MYLANLABS-2020M1082002

PATIENT
  Age: 61 Year
  Sex: Female

DRUGS (8)
  1. LEVOMEPROMAZINE [Concomitant]
     Active Substance: LEVOMEPROMAZINE
     Indication: NAUSEA
     Dosage: 12.5MG VIA CSCI (CONTINUOUS SUBCUTANEOUS INFUSION)
     Route: 058
     Dates: start: 20200616
  2. ENOXAPARIN [Concomitant]
     Active Substance: ENOXAPARIN
     Indication: DEEP VEIN THROMBOSIS
  3. MEROPENEM. [Concomitant]
     Active Substance: MEROPENEM
     Indication: PERICARDIAL EFFUSION
     Dosage: 1G TDS
     Dates: start: 20200604, end: 20200820
  4. PANTOPRAZOLE [Concomitant]
     Active Substance: PANTOPRAZOLE
     Indication: GASTRITIS
     Dosage: 40MG BD
     Dates: start: 20200328
  5. ANIDULAFUNGIN [Concomitant]
     Active Substance: ANIDULAFUNGIN
     Indication: PERICARDIAL EFFUSION
     Dosage: 100MG OD
     Dates: start: 20200709, end: 20200820
  6. LINEZOLID. [Suspect]
     Active Substance: LINEZOLID
     Indication: PERICARDIAL EFFUSION
     Dosage: 600MG BD
     Route: 042
     Dates: start: 20200625, end: 20200820
  7. BUSCOPAN [Concomitant]
     Active Substance: BUTYLSCOPOLAMINE BROMIDE
     Dosage: 40MG PLUS PRNS
     Dates: start: 20200616
  8. ENOXAPARIN [Concomitant]
     Active Substance: ENOXAPARIN
     Indication: PULMONARY EMBOLISM
     Dosage: 85MG OD
     Dates: start: 20200328

REACTIONS (2)
  - Intentional product use issue [Unknown]
  - Lactic acidosis [Recovered/Resolved]

NARRATIVE: CASE EVENT DATE: 20200820
